FAERS Safety Report 7327246-7 (Version None)
Quarter: 2011Q1

REPORT INFORMATION
  Report Type: 
  Country: None (occurrence: None)
  Receive Date: 20110302
  Receipt Date: 20110225
  Transmission Date: 20110831
  Serious: Yes (Other)
  Sender: FDA-Public Use
  Company Number: BR-PFIZER INC-2011042670

PATIENT
  Age: 46 Year
  Sex: Male
  Weight: 106 kg

DRUGS (3)
  1. VENLAFAXINE HYDROCHLORIDE [Concomitant]
     Dosage: UNK, 1X/DAY IN THE MORNING
     Dates: start: 20101101
  2. VALSARTAN [Concomitant]
     Indication: BLOOD PRESSURE ABNORMAL
     Dosage: 320 MG, 1X/DAY
  3. CHAMPIX [Suspect]
     Indication: TOBACCO USER
     Dosage: UNK
     Route: 048
     Dates: start: 20101127

REACTIONS (2)
  - CHOLELITHIASIS [None]
  - NEPHROLITHIASIS [None]
